FAERS Safety Report 7821304-6 (Version None)
Quarter: 2011Q4

REPORT INFORMATION
  Report Type: 
  Country: None (occurrence: None)
  Receive Date: 20111018
  Receipt Date: 20101104
  Transmission Date: 20120403
  Serious: No
  Sender: FDA-Public Use
  Company Number: US-ASTRAZENECA-2010SE52602

PATIENT
  Age: 60 Year
  Sex: Male

DRUGS (1)
  1. SYMBICORT [Suspect]
     Indication: BRONCHITIS
     Dosage: 320 MCG BID
     Route: 055

REACTIONS (3)
  - HYPERTENSION [None]
  - ELECTROCARDIOGRAM ABNORMAL [None]
  - GOUT [None]
